FAERS Safety Report 4296332-0 (Version None)
Quarter: 2004Q1

REPORT INFORMATION
  Report Type: 
  Country: None (occurrence: None)
  Receive Date: 20040213
  Receipt Date: 20040213
  Transmission Date: 20041129
  Serious: Yes (Hospitalization)
  Sender: FDA-Public Use
  Company Number: None

PATIENT
  Sex: Female
  Weight: 67.586 kg

DRUGS (6)
  1. TAXOL [Suspect]
     Indication: LUNG NEOPLASM MALIGNANT
  2. CARBOPLATIN [Suspect]
     Indication: LUNG NEOPLASM MALIGNANT
  3. PREDNISONE [Concomitant]
  4. SINGULAIR [Concomitant]
  5. COMPAZINE [Concomitant]
  6. PERCOCET [Concomitant]

REACTIONS (1)
  - FEBRILE NEUTROPENIA [None]
